FAERS Safety Report 9166250 (Version 2)
Quarter: 2013Q2

REPORT INFORMATION
  Report Type: Spontaneous
  Country: FR (occurrence: None)
  Receive Date: 20130301
  Receipt Date: 20130508
  Transmission Date: 20140414
  Serious: Yes (Hospitalization, Other)
  Sender: FDA-Public Use
  Company Number: 2013P1002618

PATIENT
  Sex: 0

DRUGS (4)
  1. AMLODIPINE [Suspect]
  2. RISPERIDONE [Suspect]
  3. MIANSERIN [Suspect]
  4. RAMIPRIL [Suspect]

REACTIONS (1)
  - Faecaloma [None]
